FAERS Safety Report 6418789-9 (Version None)
Quarter: 2009Q4

REPORT INFORMATION
  Report Type: 
  Country: None (occurrence: None)
  Receive Date: 20091026
  Receipt Date: 20091014
  Transmission Date: 20100525
  Serious: Yes (Other)
  Sender: FDA-Public Use
  Company Number: 2009AC000177

PATIENT
  Age: 46 Year
  Sex: Female
  Weight: 101.1521 kg

DRUGS (50)
  1. DIGOXIN [Suspect]
     Indication: CARDIAC DISORDER
     Dosage: 125 MCG; PO
     Route: 048
     Dates: start: 20001116, end: 20080401
  2. LISINOPRIL [Concomitant]
  3. MICARDIS [Concomitant]
  4. DEPO-PROVERA [Concomitant]
  5. DOXYCYCLINE [Concomitant]
  6. ZITHROMAX [Concomitant]
  7. COREG [Concomitant]
  8. ZESTRIL [Concomitant]
  9. ZYRTEC [Concomitant]
  10. EPIPEN [Concomitant]
  11. ATENOLOL [Concomitant]
  12. HYDROCODONE [Concomitant]
  13. PREMARIN [Concomitant]
  14. SULFAMETHOXAZOLE [Concomitant]
  15. OXYCODONE HCL AND ACETAMINOPHEN [Concomitant]
  16. TEQUIN [Concomitant]
  17. PROPOXYPHENE NAPSYLATE AND ACETAMINOPHEN [Concomitant]
  18. ACETOMINOPHEN-COD #3 [Concomitant]
  19. POTASSIUM CHLORIDE [Concomitant]
  20. TOPAMAX [Concomitant]
  21. METHYLPREDNISOLONE 4MG TAB [Concomitant]
  22. METFORMIN [Concomitant]
  23. ALPRAZOLAM [Concomitant]
  24. FUROSEMIDE [Concomitant]
  25. PAROXETINE [Concomitant]
  26. NAPROXEN [Concomitant]
  27. TRAMADOL HCL [Concomitant]
  28. GLIPIZIDE [Concomitant]
  29. SERTRALINE [Concomitant]
  30. AMOXICILLIN [Concomitant]
  31. AZITHROMYCIN [Concomitant]
  32. MEDROXYPROGESTERONE [Concomitant]
  33. TIKOSYN [Concomitant]
  34. MAG-OXIDE [Concomitant]
  35. IMITREX [Concomitant]
  36. AVANDIA [Concomitant]
  37. KLOR-CON [Concomitant]
  38. SPIRONOLACTONE [Concomitant]
  39. FEXOFENADINE [Concomitant]
  40. SKELAXIN [Concomitant]
  41. INSPRA [Concomitant]
  42. VALTREX [Concomitant]
  43. CIPROFLOXACIN [Concomitant]
  44. QUIINE SULFATE [Concomitant]
  45. ACTOS [Concomitant]
  46. AVELOX [Concomitant]
  47. METRONIDAZOLE [Concomitant]
  48. CEPHALEXIN [Concomitant]
  49. PAXIL [Concomitant]
  50. ALLEGRA [Concomitant]

REACTIONS (14)
  - ANXIETY [None]
  - BLOOD GLUCOSE INCREASED [None]
  - BLOOD PRESSURE INCREASED [None]
  - CHEST DISCOMFORT [None]
  - EAR PAIN [None]
  - ECONOMIC PROBLEM [None]
  - FEELING ABNORMAL [None]
  - HEART RATE IRREGULAR [None]
  - HYPOTENSION [None]
  - MIGRAINE [None]
  - MULTIPLE INJURIES [None]
  - PAIN [None]
  - THERAPEUTIC AGENT TOXICITY [None]
  - VIRAL UPPER RESPIRATORY TRACT INFECTION [None]
